FAERS Safety Report 14310138 (Version 5)
Quarter: 2018Q4

REPORT INFORMATION
  Report Type: Spontaneous
  Country: DE (occurrence: DE)
  Receive Date: 20171220
  Receipt Date: 20181130
  Transmission Date: 20190204
  Serious: Yes (Other)
  Sender: FDA-Public Use
  Company Number: DE-OTSUKA-2017_027851

PATIENT
  Sex: Female

DRUGS (1)
  1. ARIPIPRAZOLE. [Suspect]
     Active Substance: ARIPIPRAZOLE
     Indication: PRODUCT USED FOR UNKNOWN INDICATION
     Dosage: UNK
     Route: 065

REACTIONS (54)
  - Chronic sinusitis [Unknown]
  - Cerebral disorder [Unknown]
  - Incontinence [Unknown]
  - Migraine [Unknown]
  - Heart rate increased [Unknown]
  - Skin haemorrhage [Unknown]
  - Skin disorder [Unknown]
  - Gait disturbance [Unknown]
  - Myocardial infarction [Unknown]
  - Muscle spasms [Unknown]
  - Fatigue [Unknown]
  - Headache [Unknown]
  - Visual impairment [Unknown]
  - Deep vein thrombosis [Unknown]
  - Tremor [Unknown]
  - Weight increased [Unknown]
  - Inflammatory marker increased [Unknown]
  - Cartilage injury [Unknown]
  - Hypovitaminosis [Unknown]
  - Hypertension [Unknown]
  - Anxiety [Unknown]
  - Depression [Unknown]
  - Vomiting [Unknown]
  - Constipation [Unknown]
  - Laryngitis [Unknown]
  - Skin discolouration [Unknown]
  - Osteoarthritis [Unknown]
  - Adverse event [Unknown]
  - Dysphonia [Unknown]
  - Peripheral swelling [Unknown]
  - Body temperature decreased [Unknown]
  - Dyspnoea [Unknown]
  - Pyrexia [Unknown]
  - Intervertebral disc protrusion [Unknown]
  - Aphasia [Unknown]
  - Cerebrovascular accident [Unknown]
  - Arthralgia [Unknown]
  - Eye discharge [Unknown]
  - Blood viscosity increased [Unknown]
  - Vocal cord cyst [Unknown]
  - Iron deficiency [Unknown]
  - Emotional disorder [Unknown]
  - Contusion [Unknown]
  - Neurodermatitis [Unknown]
  - Rash [Unknown]
  - Dyspepsia [Unknown]
  - Restlessness [Unknown]
  - Eye inflammation [Unknown]
  - Ocular hyperaemia [Unknown]
  - Asthma [Unknown]
  - Allergic reaction to excipient [Unknown]
  - Muscle spasticity [Unknown]
  - Tongue disorder [Unknown]
  - Muscle tightness [Unknown]
